FAERS Safety Report 20850571 (Version 1)
Quarter: 2022Q2

REPORT INFORMATION
  Report Type: Report from Study
  Country: US (occurrence: US)
  Receive Date: 20220519
  Receipt Date: 20220519
  Transmission Date: 20220721
  Serious: Yes (Other)
  Sender: FDA-Public Use
  Company Number: US-ALLERGAN-2216160US

PATIENT
  Sex: Female

DRUGS (1)
  1. UBROGEPANT [Suspect]
     Active Substance: UBROGEPANT
     Indication: Product used for unknown indication
     Dosage: UNK
     Dates: start: 202109

REACTIONS (4)
  - Cerebrovascular accident [Unknown]
  - Liver transplant [Unknown]
  - Nausea [Not Recovered/Not Resolved]
  - Headache [Unknown]
